FAERS Safety Report 5010440-8 (Version None)
Quarter: 2006Q2

REPORT INFORMATION
  Report Type: 
  Country: None (occurrence: None)
  Receive Date: 20060523
  Receipt Date: 20060510
  Transmission Date: 20061013
  Serious: Yes (Other)
  Sender: FDA-Public Use
  Company Number: 2006063031

PATIENT
  Age: 80 Year
  Sex: Female

DRUGS (4)
  1. DILANTIN [Suspect]
     Indication: CONVULSION
     Dosage: 250 MG (TOTAL), INTRAVENOUS
     Route: 042
     Dates: start: 19791024
  2. VALIUM [Concomitant]
  3. DECADRON SRC [Concomitant]
  4. BACTRIM [Concomitant]

REACTIONS (2)
  - HEPATIC ENZYME INCREASED [None]
  - HEPATIC FUNCTION ABNORMAL [None]
